FAERS Safety Report 20773339 (Version 1)
Quarter: 2022Q2

REPORT INFORMATION
  Report Type: Spontaneous
  Country: CA (occurrence: CA)
  Receive Date: 20220502
  Receipt Date: 20220502
  Transmission Date: 20220720
  Serious: Yes (Hospitalization)
  Sender: FDA-Public Use
  Company Number: CA-009507513-2204CAN009708

PATIENT
  Age: 54 Year
  Sex: Male

DRUGS (6)
  1. TEMODAL [Suspect]
     Active Substance: TEMOZOLOMIDE
     Indication: Astrocytoma
     Dosage: UNK, DOSAGE FORM: NOT SPECIFIED
  2. LOMUSTINE [Suspect]
     Active Substance: LOMUSTINE
     Dosage: UNK, DOSAGE FORM: NOT SPECIFIED
  3. DEXAMETHASONE [Concomitant]
     Active Substance: DEXAMETHASONE
     Dosage: UNK, DOSAGE FORM: NOT SPECIFIED
     Route: 065
  4. ETOPOSIDE [Suspect]
     Active Substance: ETOPOSIDE
     Dosage: UNK, DOSAGE FORM: NOT SPECIFIED
  5. LEVETIRACETAM [Concomitant]
     Active Substance: LEVETIRACETAM
     Dosage: UNK
     Route: 065
  6. SEPTRA [Concomitant]
     Active Substance: SULFAMETHOXAZOLE\TRIMETHOPRIM
     Dosage: UNK

REACTIONS (3)
  - Confusional state [Unknown]
  - Eastern Cooperative Oncology Group performance status worsened [Unknown]
  - Thrombocytopenia [Unknown]
